FAERS Safety Report 8106595 (Version 2)
Quarter: 2012Q4

REPORT INFORMATION
  Report Type: 
  Country: US (occurrence: US)
  Receive Date: 20110825
  Receipt Date: 20121120
  Transmission Date: 20130627
  Serious: Yes (Hospitalization)
  Sender: FDA-Public Use
  Company Number: US-GLAXOSMITHKLINE-A0922115A

PATIENT
  Age: 52 Year
  Sex: Female

DRUGS (2)
  1. AVANDAMET [Suspect]
     Indication: DIABETES MELLITUS
     Route: 048
     Dates: start: 200404, end: 200502
  2. AVANDIA [Suspect]
     Indication: DIABETES MELLITUS
     Dosage: 4MG Twice per day
     Route: 048
     Dates: start: 200503, end: 2007

REACTIONS (6)
  - Renal failure [Not Recovered/Not Resolved]
  - Pain [Unknown]
  - Lower limb fracture [Unknown]
  - Femur fracture [Unknown]
  - Cardiac failure congestive [Unknown]
  - Implantable defibrillator insertion [Unknown]
